FAERS Safety Report 6009922-1 (Version None)
Quarter: 2008Q4

REPORT INFORMATION
  Report Type: 
  Country: None (occurrence: None)
  Receive Date: 20081216
  Receipt Date: 20081201
  Transmission Date: 20090506
  Serious: Yes (Hospitalization)
  Sender: FDA-Public Use
  Company Number: 2008002801

PATIENT
  Age: 73 Year
  Sex: Female

DRUGS (3)
  1. ERLOTINIB (ERLOTINIB) (TABLET) (ERLOTINIB) [Suspect]
     Indication: NON-SMALL CELL LUNG CANCER
     Dosage: (150 MG, QD) ,ORAL
     Route: 048
     Dates: start: 20080916
  2. ERLOTINIB (ERLOTINIB) (TABLET) (ERLOTINIB) [Suspect]
     Indication: NON-SMALL CELL LUNG CANCER
     Dosage: (150 MG, QD) ,ORAL
     Route: 048
     Dates: start: 20081026
  3. DASATINIB [Suspect]
     Indication: NON-SMALL CELL LUNG CANCER
     Dosage: (140 MG,GD),ORAL
     Route: 048
     Dates: start: 20080924

REACTIONS (4)
  - CARDIAC DISORDER [None]
  - MALIGNANT PLEURAL EFFUSION [None]
  - NEOPLASM RECURRENCE [None]
  - PERICARDIAL EFFUSION [None]
